FAERS Safety Report 6092658-9 (Version None)
Quarter: 2009Q1

REPORT INFORMATION
  Report Type: 
  Country: None (occurrence: None)
  Receive Date: 20090225
  Receipt Date: 20090211
  Transmission Date: 20090719
  Serious: Yes (Other)
  Sender: FDA-Public Use
  Company Number: PHHY2009MX05213

PATIENT
  Sex: Male

DRUGS (4)
  1. DIOVAN HCT [Suspect]
     Indication: HYPERTENSION
     Dosage: 1 DF, QD
     Route: 048
     Dates: start: 20080807, end: 20090201
  2. IMDUR [Concomitant]
     Dosage: 1 DF, QD
     Dates: start: 20081201
  3. CONCOR [Concomitant]
     Dosage: 1 DF, QD
     Dates: start: 20081201
  4. FUROSEMIDE [Concomitant]
     Dosage: 1 DF, QD

REACTIONS (2)
  - HYPERTENSION [None]
  - TESTICULAR DISORDER [None]
